FAERS Safety Report 6240731-4 (Version None)
Quarter: 2009Q2

REPORT INFORMATION
  Report Type: 
  Country: None (occurrence: None)
  Receive Date: 20090623
  Receipt Date: 20090327
  Transmission Date: 20091009
  Serious: No
  Sender: FDA-Public Use
  Company Number: US-ASTRAZENECA-2009UW05619

PATIENT
  Age: 68 Year
  Sex: Female
  Weight: 74.8 kg

DRUGS (13)
  1. PULMICORT RESPULES [Suspect]
     Dosage: 0.5 MG/ML
     Route: 055
     Dates: start: 20060101
  2. COMBIVENT [Concomitant]
     Indication: CHRONIC OBSTRUCTIVE PULMONARY DISEASE
     Route: 055
  3. IPRATROPIUM BROMIDE WITH ALBUTEROL [Concomitant]
     Indication: CHRONIC OBSTRUCTIVE PULMONARY DISEASE
     Route: 055
  4. METFORMIN HCL [Concomitant]
     Indication: DIABETES MELLITUS
     Route: 048
  5. AVAPRO [Concomitant]
     Indication: HYPERTENSION
     Route: 048
  6. LEVOTHYROXINE SODIUM [Concomitant]
     Indication: THYROID DISORDER
     Route: 048
  7. NIACIN [Concomitant]
     Indication: HYPERCHOLESTEROLAEMIA
     Route: 048
  8. MACROBID [Concomitant]
     Indication: UTERINE RUPTURE
     Route: 054
  9. VITAMIN D [Concomitant]
     Dosage: 50000 UNITS
     Route: 048
  10. PREDNISONE [Concomitant]
     Indication: OTOSALPINGITIS
     Route: 048
  11. VITAMIN B COMPLEX CAP [Concomitant]
     Route: 048
  12. GARLIC [Concomitant]
     Route: 048
  13. ALPRAZALINE [Concomitant]
     Indication: SLEEP DISORDER
     Route: 048

REACTIONS (4)
  - CHOKING [None]
  - DYSPNOEA [None]
  - PULMONARY CONGESTION [None]
  - WHEEZING [None]
